FAERS Safety Report 23036105 (Version 1)
Quarter: 2023Q4

REPORT INFORMATION
  Report Type: Spontaneous
  Country: TW (occurrence: TW)
  Receive Date: 20231006
  Receipt Date: 20231006
  Transmission Date: 20240110
  Serious: Yes (Hospitalization, Other)
  Sender: FDA-Public Use
  Company Number: TW-IPCA LABORATORIES LIMITED-IPC-2023-TW-001681

PATIENT

DRUGS (3)
  1. WARFARIN [Suspect]
     Active Substance: WARFARIN
     Indication: Tricuspid valve incompetence
     Dosage: 1 MILLIGRAM, QD
     Route: 065
     Dates: start: 20200122
  2. WARFARIN [Suspect]
     Active Substance: WARFARIN
     Indication: Atrial fibrillation
     Dosage: 2 MILLIGRAM
     Route: 065
     Dates: start: 20200207
  3. WARFARIN [Suspect]
     Active Substance: WARFARIN
     Dosage: 2.5 MILLIGRAM
     Route: 065
     Dates: start: 20200210

REACTIONS (3)
  - Ischaemic stroke [Recovered/Resolved]
  - Pericardial effusion [Recovered/Resolved]
  - Anticoagulation drug level above therapeutic [Recovered/Resolved]
